FAERS Safety Report 8073646-X (Version None)
Quarter: 2012Q1

REPORT INFORMATION
  Report Type: 
  Country: None (occurrence: None)
  Receive Date: 20120126
  Receipt Date: 20120119
  Transmission Date: 20120608
  Serious: Yes (Death, Hospitalization)
  Sender: FDA-Public Use
  Company Number: JP-ROCHE-1001070

PATIENT
  Sex: Male
  Weight: 76 kg

DRUGS (7)
  1. AVASTIN [Suspect]
     Indication: LUNG ADENOCARCINOMA METASTATIC
     Route: 041
     Dates: start: 20110712, end: 20110913
  2. ALIMTA [Concomitant]
     Indication: LUNG ADENOCARCINOMA METASTATIC
     Route: 041
     Dates: start: 20110506, end: 20110913
  3. ADRENAL HORMONE PREPARATION (UNK INGREDIENTS) [Concomitant]
     Dosage: DOSAGE IS UNCERTAIN.
     Route: 065
  4. LENDORMIN [Concomitant]
     Indication: INSOMNIA
     Route: 048
     Dates: start: 20110822
  5. PANVITAN [Concomitant]
     Indication: PROPHYLAXIS
     Route: 048
     Dates: start: 20110426, end: 20110923
  6. MS CONTIN [Concomitant]
     Indication: PAIN
     Route: 048
     Dates: start: 20110412
  7. CISPLATIN [Concomitant]
     Indication: LUNG ADENOCARCINOMA METASTATIC
     Route: 041
     Dates: start: 20110506, end: 20110913

REACTIONS (2)
  - RECTAL PERFORATION [None]
  - DISEASE PROGRESSION [None]
